FAERS Safety Report 9360396 (Version 2)
Quarter: 2013Q4

REPORT INFORMATION
  Report Type: Spontaneous
  Country: US (occurrence: US)
  Receive Date: 20130621
  Receipt Date: 20131203
  Transmission Date: 20140711
  Serious: Yes (Hospitalization)
  Sender: FDA-Public Use
  Company Number: US-BAYER-2013-076463

PATIENT
  Age: 52 Year
  Sex: Female

DRUGS (14)
  1. GIANVI [Suspect]
     Dosage: UNK
     Dates: start: 20100617, end: 20101001
  2. YAZ [Suspect]
     Dosage: UNK
     Dates: start: 200603, end: 201006
  3. YASMIN [Suspect]
  4. TOPAMAX [Concomitant]
     Indication: PAIN PROPHYLAXIS
     Dosage: 75 MG, TWICE DAILY
  5. EFFEXOR [Concomitant]
     Dosage: 75 MG, TWICE DAILY
  6. VITAMIN D [Concomitant]
     Dosage: 2000 MG,  DAILY
  7. VITAMIN E [Concomitant]
     Dosage: 2000 UNITS, DAILY
  8. CEPHALEXIN [Concomitant]
     Dosage: 500 MG, UNK
  9. RANITIDINE [Concomitant]
     Dosage: 150 MG, UNK
  10. HYDROCODONE W/APAP [Concomitant]
     Dosage: 7.5/650
  11. AMOXICILLIN [Concomitant]
     Dosage: 500 MG, UNK
  12. TOPIRAMATE [Concomitant]
  13. VENLAFAXINE [Concomitant]
     Dosage: 75 MG, UNK
  14. APIXABAN [Concomitant]

REACTIONS (8)
  - Deep vein thrombosis [Recovered/Resolved]
  - Thrombosis [None]
  - Injury [Recovered/Resolved]
  - Pain [None]
  - Emotional distress [None]
  - General physical health deterioration [Recovered/Resolved]
  - Anxiety [None]
  - Pain [Recovered/Resolved]
